FAERS Safety Report 5410499-X (Version None)
Quarter: 2007Q3

REPORT INFORMATION
  Report Type: 
  Country: None (occurrence: None)
  Receive Date: 20070810
  Receipt Date: 20070126
  Transmission Date: 20080115
  Serious: No
  Sender: FDA-Public Use
  Company Number: A0637019A

PATIENT
  Age: 53 Year
  Sex: Female

DRUGS (6)
  1. PAXIL [Suspect]
     Indication: SLEEP DISORDER
     Dosage: 30MG PER DAY
     Route: 048
  2. PAXIL CR [Suspect]
     Indication: SLEEP DISORDER
     Route: 048
  3. PAROXETINE [Suspect]
     Indication: SLEEP DISORDER
     Route: 048
  4. SYNTHROID [Concomitant]
  5. ESTRADIOL [Concomitant]
  6. SULINDAC [Concomitant]

REACTIONS (3)
  - DRUG INEFFECTIVE [None]
  - INSOMNIA [None]
  - PHARMACEUTICAL PRODUCT COMPLAINT [None]
